FAERS Safety Report 20404596 (Version 1)
Quarter: 2022Q1

REPORT INFORMATION
  Report Type: Spontaneous
  Country: NL (occurrence: NL)
  Receive Date: 20220131
  Receipt Date: 20220131
  Transmission Date: 20220423
  Serious: Yes (Congenital Anomaly, Other)
  Sender: FDA-Public Use
  Company Number: NL-MACLEODS PHARMACEUTICALS US LTD-MAC2022034213

PATIENT

DRUGS (9)
  1. EMTRICITABINE\TENOFOVIR DISOPROXIL [Suspect]
     Active Substance: EMTRICITABINE\TENOFOVIR DISOPROXIL
     Indication: Product used for unknown indication
     Dosage: UNK UNK, QD
     Route: 064
  2. DOLUTEGRAVIR [Suspect]
     Active Substance: DOLUTEGRAVIR
     Indication: Product used for unknown indication
     Dosage: 50 MILLIGRAM, BID
     Route: 064
  3. DOLUTEGRAVIR [Suspect]
     Active Substance: DOLUTEGRAVIR
     Dosage: UNK (LAST MATERNAL DOLUTEGRAVIR DOSE WAS TAKEN 14 HOURS BEFORE DELIVERY)
     Route: 064
  4. DARUNAVIR\RITONAVIR [Suspect]
     Active Substance: DARUNAVIR\RITONAVIR
     Indication: Product used for unknown indication
     Dosage: UNK UNK, BID
     Route: 064
  5. RALTEGRAVIR [Suspect]
     Active Substance: RALTEGRAVIR
     Indication: Prophylaxis against HIV infection
     Dosage: 400 MILLIGRAM, BID, AT 20 WEEKS GESTATIONAL AGE
     Route: 064
  6. RALTEGRAVIR [Suspect]
     Active Substance: RALTEGRAVIR
     Dosage: 1.5 MICROGRAM/KILOGRAM, QD (INITIATED 3.5 HOURS AFTER BIRTH)
     Route: 064
  7. COBICISTAT\ELVITEGRAVIR\EMTRICITABINE\TENOFOVIR [Suspect]
     Active Substance: COBICISTAT\ELVITEGRAVIR\EMTRICITABINE\TENOFOVIR
     Indication: Product used for unknown indication
     Dosage: UNK
     Route: 064
     Dates: start: 201910
  8. LAMIVUDINE [Concomitant]
     Active Substance: LAMIVUDINE
     Indication: Prophylaxis against HIV infection
     Dosage: 2 MILLIGRAM/KILOGRAM, BID, 3.5 HOURS AFTER BIRTH
     Route: 065
  9. ZIDOVUDINE [Concomitant]
     Active Substance: ZIDOVUDINE
     Indication: Prophylaxis against HIV infection
     Dosage: 4 MILLIGRAM/KILOGRAM, BID, 3.5 HOURS AFTER BIRTH
     Route: 065

REACTIONS (4)
  - Foetal arrhythmia [Unknown]
  - Atrial flutter [Unknown]
  - Drug level increased [Unknown]
  - Foetal exposure during pregnancy [Unknown]
